FAERS Safety Report 19899077 (Version 2)
Quarter: 2021Q4

REPORT INFORMATION
  Report Type: Spontaneous
  Country: US (occurrence: US)
  Receive Date: 20210930
  Receipt Date: 20211009
  Transmission Date: 20220303
  Serious: No
  Sender: FDA-Public Use
  Company Number: US-JNJFOC-20210929259

PATIENT
  Age: 40 Year
  Sex: Female
  Weight: 130.75 kg

DRUGS (1)
  1. TREMFYA [Suspect]
     Active Substance: GUSELKUMAB
     Indication: Arthritis
     Dosage: FREQUENCY: ONCE EVERY 6-8 WEEKS, THERAPY START DATE; 2017/2018
     Route: 065

REACTIONS (7)
  - Product leakage [Unknown]
  - Accidental exposure to product [Unknown]
  - Product dose omission issue [Unknown]
  - Injection site haemorrhage [Unknown]
  - Arthritis [Unknown]
  - Off label use [Unknown]
  - Product use in unapproved indication [Unknown]

NARRATIVE: CASE EVENT DATE: 20210101
